FAERS Safety Report 15162212 (Version 1)
Quarter: 2018Q3

REPORT INFORMATION
  Report Type: Report from Study
  Country: US (occurrence: US)
  Receive Date: 20180718
  Receipt Date: 20180718
  Transmission Date: 20181010
  Serious: No
  Sender: FDA-Public Use
  Company Number: US-AMGEN-USASP2014016118

PATIENT
  Age: 40 Year
  Sex: Male
  Weight: 96.14 kg

DRUGS (4)
  1. ULTRAVATE                          /00008504/ [Concomitant]
     Dosage: 0.05 %, UNK
  2. COZAAR [Concomitant]
     Active Substance: LOSARTAN POTASSIUM
     Dosage: 25 MG, UNK
  3. FELDENE [Concomitant]
     Active Substance: PIROXICAM
     Dosage: 10 MG, UNK
  4. ENBREL [Suspect]
     Active Substance: ETANERCEPT
     Indication: PRODUCT USED FOR UNKNOWN INDICATION
     Dosage: 50 MG, 2 TIMES/WK
     Route: 058

REACTIONS (2)
  - Drug effect incomplete [Unknown]
  - Psoriasis [Unknown]
